FAERS Safety Report 6398909-5 (Version None)
Quarter: 2009Q4

REPORT INFORMATION
  Report Type: 
  Country: None (occurrence: None)
  Receive Date: 20091013
  Receipt Date: 20091002
  Transmission Date: 20100525
  Serious: Yes (Hospitalization)
  Sender: FDA-Public Use
  Company Number: US-BAXTER-2009BH014238

PATIENT
  Age: 28 Year
  Sex: Male

DRUGS (3)
  1. DIANEAL [Suspect]
     Indication: PERITONEAL DIALYSIS
     Route: 033
     Dates: start: 20070708, end: 20090719
  2. DIANEAL [Suspect]
     Route: 033
     Dates: start: 20070708, end: 20090719
  3. DIANEAL [Suspect]
     Indication: PERITONEAL DIALYSIS
     Route: 033
     Dates: start: 20070708, end: 20090719

REACTIONS (3)
  - FUNGAL PERITONITIS [None]
  - NAUSEA [None]
  - PERITONEAL DIALYSIS COMPLICATION [None]
